FAERS Safety Report 6861284-3 (Version None)
Quarter: 2010Q3

REPORT INFORMATION
  Report Type: 
  Country: None (occurrence: None)
  Receive Date: 20100720
  Receipt Date: 20100712
  Transmission Date: 20110219
  Serious: Yes (Other)
  Sender: FDA-Public Use
  Company Number: BR-GENENTECH-304187

PATIENT
  Sex: Female
  Weight: 78.9 kg

DRUGS (13)
  1. RITUXIMAB [Suspect]
     Indication: RHEUMATOID ARTHRITIS
     Dosage: UNK
     Route: 042
     Dates: start: 20091210, end: 20091219
  2. RITUXIMAB [Suspect]
     Indication: SJOGREN'S SYNDROME
  3. PREDNISOLONE [Concomitant]
     Indication: PRODUCT USED FOR UNKNOWN INDICATION
     Dosage: 10 MG, UNK
  4. METHOTREXATE [Concomitant]
     Indication: PRODUCT USED FOR UNKNOWN INDICATION
     Dosage: 50 MG, UNK
  5. METHOTREXATE [Concomitant]
     Dosage: 1 ML, UNK
  6. ESTRADIOL [Concomitant]
     Indication: PRODUCT USED FOR UNKNOWN INDICATION
     Dosage: 1 MG, UNK
  7. HYDROCHLOROTHIAZIDE/LOSARTAN POTASSIUM [Concomitant]
     Indication: PRODUCT USED FOR UNKNOWN INDICATION
     Dosage: UNK
  8. SIMVASTATIN [Concomitant]
     Indication: PRODUCT USED FOR UNKNOWN INDICATION
     Dosage: 20 MG, UNK
  9. FOLIC ACID [Concomitant]
     Indication: PRODUCT USED FOR UNKNOWN INDICATION
     Dosage: UNK UNK, 3/WEEK
  10. OMEPRAZOLE [Concomitant]
     Indication: PRODUCT USED FOR UNKNOWN INDICATION
     Dosage: 40 MG, UNK
  11. SIBUTRAMINE [Concomitant]
     Indication: PRODUCT USED FOR UNKNOWN INDICATION
     Dosage: 10 MG, UNK
  12. ALPRAZOLAM [Concomitant]
     Indication: PRODUCT USED FOR UNKNOWN INDICATION
     Dosage: .25 MG, UNK
  13. DEXTRAN 70 [Concomitant]
     Indication: PRODUCT USED FOR UNKNOWN INDICATION
     Dosage: 15 ML, UNK

REACTIONS (12)
  - ABDOMINAL PAIN [None]
  - ARTHRALGIA [None]
  - DEPRESSION [None]
  - DYSPNOEA [None]
  - EXOSTOSIS [None]
  - LARYNGEAL STENOSIS [None]
  - NAUSEA [None]
  - OSTEOARTHRITIS [None]
  - PYREXIA [None]
  - RED BLOOD CELL SEDIMENTATION RATE DECREASED [None]
  - SYNOVIAL CYST [None]
  - WEIGHT DECREASED [None]
